FAERS Safety Report 25190073 (Version 11)
Quarter: 2025Q3

REPORT INFORMATION
  Report Type: Report from Study
  Country: US (occurrence: US)
  Receive Date: 20250411
  Receipt Date: 20250925
  Transmission Date: 20251021
  Serious: Yes (Hospitalization, Other)
  Sender: DECIPHERA PHARMACEUTICALS
  Company Number: US-DECIPHERA PHARMACEUTICALS LLC-2025US000279

PATIENT
  Age: 71 Year
  Sex: Male

DRUGS (5)
  1. QINLOCK [Suspect]
     Active Substance: RIPRETINIB
     Indication: Gastrointestinal stromal tumour
     Dosage: 150 MILLIGRAM, QD
     Route: 048
     Dates: start: 20250307, end: 2025
  2. QINLOCK [Suspect]
     Active Substance: RIPRETINIB
     Dosage: 150 MILLIGRAM, QD
     Route: 048
     Dates: start: 2025, end: 202507
  3. QINLOCK [Suspect]
     Active Substance: RIPRETINIB
     Dosage: 150 MILLIGRAM, QD
     Route: 048
     Dates: start: 202507, end: 2025
  4. QINLOCK [Suspect]
     Active Substance: RIPRETINIB
     Dosage: 150 MILLIGRAM, BID (50 MG, 3 TABLETS TWICE DAILY)
     Route: 048
     Dates: start: 2025
  5. VITAMIN B [Concomitant]
     Active Substance: VITAMIN B
     Indication: Product used for unknown indication

REACTIONS (16)
  - Cholelithiasis [Unknown]
  - Gallbladder enlargement [Unknown]
  - Malignant neoplasm progression [Unknown]
  - Abdominal pain upper [Not Recovered/Not Resolved]
  - Folliculitis [Unknown]
  - Back pain [Unknown]
  - Asthenia [Unknown]
  - Myalgia [Recovering/Resolving]
  - Vomiting [Unknown]
  - Alopecia [Recovering/Resolving]
  - Vitamin B complex deficiency [Unknown]
  - Vitamin D decreased [Unknown]
  - Product dose omission in error [Unknown]
  - Incorrect dose administered [Unknown]
  - Inappropriate schedule of product administration [Unknown]
  - Product dose omission issue [Unknown]

NARRATIVE: CASE EVENT DATE: 20250101
